FAERS Safety Report 5837330-2 (Version None)
Quarter: 2008Q3

REPORT INFORMATION
  Report Type: 
  Country: None (occurrence: None)
  Receive Date: 20080807
  Receipt Date: 20080730
  Transmission Date: 20090109
  Serious: Yes (Other)
  Sender: FDA-Public Use
  Company Number: DE-PFIZER INC-2008059551

PATIENT
  Sex: Male
  Weight: 76 kg

DRUGS (1)
  1. LYRICA [Suspect]
     Indication: AGORAPHOBIA
     Route: 048

REACTIONS (4)
  - DEPRESSION [None]
  - FEELINGS OF WORTHLESSNESS [None]
  - MOOD ALTERED [None]
  - SUICIDAL IDEATION [None]
